FAERS Safety Report 24708485 (Version 4)
Quarter: 2025Q1

REPORT INFORMATION
  Report Type: Spontaneous
  Country: US (occurrence: US)
  Receive Date: 20241207
  Receipt Date: 20250319
  Transmission Date: 20250409
  Serious: Yes (Other)
  Sender: AUROBINDO
  Company Number: US-AUROBINDO-AUR-APL-2024-059112

PATIENT
  Age: 65 Year
  Sex: Male
  Weight: 97.5 kg

DRUGS (1)
  1. REPAGLINIDE [Suspect]
     Active Substance: REPAGLINIDE
     Indication: Type 2 diabetes mellitus
     Dosage: 4 MILLIGRAM, THREE TIMES A DAY WITH MEALS. (START DATE 12 MONTHS AGO))
     Route: 065

REACTIONS (8)
  - Hallucination [Not Recovered/Not Resolved]
  - Impaired gastric emptying [Not Recovered/Not Resolved]
  - Gastrointestinal disorder [Not Recovered/Not Resolved]
  - Back pain [Not Recovered/Not Resolved]
  - Sinusitis [Not Recovered/Not Resolved]
  - Abdominal discomfort [Unknown]
  - Urinary tract infection [Unknown]
  - Drug ineffective [Unknown]
